FAERS Safety Report 8154896 (Version 4)
Quarter: 2013Q1

REPORT INFORMATION
  Report Type: Spontaneous
  Country: US (occurrence: US)
  Receive Date: 20110923
  Receipt Date: 20130327
  Transmission Date: 20140127
  Serious: Yes (Other)
  Sender: FDA-Public Use
  Company Number: US-ASTRAZENECA-2011SE53298

PATIENT
  Age: 19 Year
  Sex: Male

DRUGS (1)
  1. NEXIUM [Suspect]
     Route: 048

REACTIONS (9)
  - Gastric ulcer haemorrhage [Unknown]
  - Dyspepsia [Unknown]
  - Throat irritation [Unknown]
  - Adverse event [Unknown]
  - Speech disorder [Unknown]
  - Ulcer [Unknown]
  - Gastrooesophageal reflux disease [Unknown]
  - Dyspepsia [Unknown]
  - Drug dose omission [Unknown]
